FAERS Safety Report 6413702-2 (Version None)
Quarter: 2009Q4

REPORT INFORMATION
  Report Type: 
  Country: None (occurrence: None)
  Receive Date: 20091026
  Receipt Date: 20090924
  Transmission Date: 20100525
  Serious: No
  Sender: FDA-Public Use
  Company Number: US-BAYER-200934236NA

PATIENT
  Age: 17 Year
  Sex: Female

DRUGS (1)
  1. YAZ [Suspect]
     Indication: PREMENSTRUAL SYNDROME
     Dates: start: 20090101

REACTIONS (1)
  - MENSTRUATION DELAYED [None]
